FAERS Safety Report 14647653 (Version 6)
Quarter: 2018Q3

REPORT INFORMATION
  Report Type: Spontaneous
  Country: JP (occurrence: JP)
  Receive Date: 20180316
  Receipt Date: 20180705
  Transmission Date: 20181010
  Serious: Yes (Hospitalization, Other)
  Sender: FDA-Public Use
  Company Number: JP-GLAXOSMITHKLINE-JP2018JPN042761

PATIENT
  Age: 84 Year
  Sex: Male
  Weight: 53 kg

DRUGS (17)
  1. ROPINIROLE HYDROCHLORIDE. [Concomitant]
     Active Substance: ROPINIROLE HYDROCHLORIDE
     Indication: TREMOR
  2. MEDICON (DEXTROMETHORPHAN HYDROBROMIDE HYDRATE) [Concomitant]
     Dosage: 0.1 G, TID
  3. HOCHU?EKKI?TO [Concomitant]
     Active Substance: UNSPECIFIED INGREDIENT
     Dosage: UNK, TID
     Dates: start: 20180618
  4. CEFDINIR. [Concomitant]
     Active Substance: CEFDINIR
     Dosage: 100 MG, TID
  5. INOLIN [Concomitant]
     Active Substance: TRETOQUINOL HYDROCHLORIDE MONOHYDRATE
     Dosage: 0.3 G, TID
  6. REQUIP [Suspect]
     Active Substance: ROPINIROLE HYDROCHLORIDE
     Indication: PARKINSON^S DISEASE
     Dosage: 2 MG, QD, AFTER BREAKFAST
     Route: 048
     Dates: start: 20180227, end: 20180312
  7. MENESIT [Concomitant]
     Active Substance: CARBIDOPA\LEVODOPA
     Dosage: 50 MG, TID
  8. HOCHU?EKKI?TO [Concomitant]
     Active Substance: UNSPECIFIED INGREDIENT
     Dosage: UNK
  9. ROPINIROLE HYDROCHLORIDE. [Concomitant]
     Active Substance: ROPINIROLE HYDROCHLORIDE
     Indication: PARKINSON^S DISEASE
     Dosage: 0.25 MG, TID
     Dates: start: 20180312, end: 20180421
  10. UBRETID [Concomitant]
     Active Substance: DISTIGMINE BROMIDE
     Indication: DYSURIA
     Dosage: 2.5 MG, BID, AFTER BREAKFAST AND DINNER
     Dates: end: 201805
  11. SELBEX FINE GRANULES 10% [Concomitant]
     Indication: DYSPEPSIA
     Dosage: 0.5 G, TID, AFTER EACH MEAL
  12. GASMOTIN TABLET [Concomitant]
     Indication: DYSPEPSIA
     Dosage: 5 MG, TID, AFTER EACH MEAL
  13. KIKYOTO [Concomitant]
     Dosage: 2.5 G, TID
  14. REQUIP [Suspect]
     Active Substance: ROPINIROLE HYDROCHLORIDE
     Indication: TREMOR
  15. URIEF [Concomitant]
     Active Substance: SILODOSIN
     Indication: DYSURIA
     Dosage: 4 MG, BID, AFTER BREAKFAST AND DINNER
  16. UBRETID [Concomitant]
     Active Substance: DISTIGMINE BROMIDE
     Dosage: 2.5 MG, BID, AFTER BREAKFAST AND DINNER
     Dates: start: 20180618
  17. SP TROCHES [Concomitant]
     Active Substance: DEQUALINIUM CHLORIDE
     Dosage: UNK

REACTIONS (21)
  - Urinary retention [Recovering/Resolving]
  - Gait disturbance [Recovering/Resolving]
  - Nasopharyngitis [Recovering/Resolving]
  - Malaise [Recovering/Resolving]
  - Pyrexia [Recovering/Resolving]
  - Laryngeal discomfort [Recovering/Resolving]
  - Productive cough [Recovering/Resolving]
  - Tremor [Recovering/Resolving]
  - Condition aggravated [Recovering/Resolving]
  - Hypotension [Not Recovered/Not Resolved]
  - Blood pressure fluctuation [Not Recovered/Not Resolved]
  - Decreased appetite [Recovering/Resolving]
  - Dizziness postural [Recovered/Resolved]
  - Gastroenteritis viral [Recovering/Resolving]
  - Genitourinary tract infection [Recovering/Resolving]
  - Dysuria [Recovering/Resolving]
  - Cough [Recovering/Resolving]
  - Sudden onset of sleep [Recovered/Resolved]
  - Seizure [Recovered/Resolved]
  - Diarrhoea [Recovering/Resolving]
  - Urinary tract infection [Recovering/Resolving]

NARRATIVE: CASE EVENT DATE: 2018
